FAERS Safety Report 5271848-9 (Version None)
Quarter: 2007Q1

REPORT INFORMATION
  Report Type: 
  Country: None (occurrence: None)
  Receive Date: 20070316
  Receipt Date: 20070306
  Transmission Date: 20070707
  Serious: Yes (Congenital Anomaly)
  Sender: FDA-Public Use
  Company Number: 2007-01097

PATIENT

DRUGS (2)
  1. SERTRALINE [Suspect]
     Dosage: SEE IMAGE
     Route: 064
  2. LORAZEPAM [Suspect]
     Dosage: SEE IMAGE
     Route: 064

REACTIONS (2)
  - CLEFT LIP AND PALATE [None]
  - DRUG EXPOSURE DURING PREGNANCY [None]
